FAERS Safety Report 23366162 (Version 1)
Quarter: 2024Q1

REPORT INFORMATION
  Report Type: Spontaneous
  Country: US (occurrence: US)
  Receive Date: 20240104
  Receipt Date: 20240104
  Transmission Date: 20240410
  Serious: Yes (Hospitalization)
  Sender: FDA-Public Use
  Company Number: US-BEXIMCO-2023BEX00084

PATIENT
  Age: 72 Year
  Sex: Female

DRUGS (1)
  1. FLECAINIDE ACETATE [Suspect]
     Active Substance: FLECAINIDE ACETATE
     Indication: Ventricular extrasystoles
     Dosage: 100 MG, 2X/DAY

REACTIONS (4)
  - Acute kidney injury [Unknown]
  - Toxicity to various agents [Recovering/Resolving]
  - Complication associated with device [Unknown]
  - Hypotension [Unknown]
